FAERS Safety Report 18826531 (Version 1)
Quarter: 2021Q1

REPORT INFORMATION
  Report Type: Spontaneous
  Country: US (occurrence: US)
  Receive Date: 20210201
  Receipt Date: 20210201
  Transmission Date: 20210419
  Serious: No
  Sender: FDA-Public Use
  Company Number: US-ABBVIE-20K-163-3410009-00

PATIENT
  Age: 49 Year
  Sex: Female
  Weight: 129.39 kg

DRUGS (2)
  1. HUMIRA [Suspect]
     Active Substance: ADALIMUMAB
     Indication: PSORIATIC ARTHROPATHY
     Dosage: INITIAL
     Route: 058
     Dates: start: 20200512, end: 20200512
  2. HUMIRA [Suspect]
     Active Substance: ADALIMUMAB
     Dosage: INITIAL
     Route: 058
     Dates: start: 20200512, end: 20200512

REACTIONS (2)
  - Wrong technique in product usage process [Recovered/Resolved]
  - Intentional product misuse [Recovered/Resolved]

NARRATIVE: CASE EVENT DATE: 20200512
